FAERS Safety Report 9821262 (Version 1)
Quarter: 2013Q4

REPORT INFORMATION
  Report Type: Spontaneous
  Country: US (occurrence: None)
  Receive Date: 20131028
  Receipt Date: 20131028
  Transmission Date: 20140711
  Serious: No
  Sender: FDA-Public Use
  Company Number: 2013US001181

PATIENT
  Age: 63 Year
  Sex: Male
  Weight: 113.4 kg

DRUGS (5)
  1. ICLUSIG [Suspect]
     Indication: CHRONIC MYELOID LEUKAEMIA
     Route: 048
     Dates: start: 20130108
  2. LANTUS (INSULIN GLARGINE) [Concomitant]
  3. LYRICA (PREGABALIN) [Concomitant]
  4. HUMULIN R (INSULIN HUMAN) [Concomitant]
  5. ENALAPRIL (ENALAPRIL) [Concomitant]

REACTIONS (1)
  - Epistaxis [None]
